FAERS Safety Report 8561117-3 (Version None)
Quarter: 2012Q3

REPORT INFORMATION
  Report Type: 
  Country: None (occurrence: None)
  Receive Date: 20120802
  Receipt Date: 20120724
  Transmission Date: 20120928
  Serious: Yes (Other)
  Sender: FDA-Public Use
  Company Number: US-ASTRAZENECA-2012SE52181

PATIENT
  Age: 22 Year
  Sex: Female
  Weight: 90.7 kg

DRUGS (10)
  1. SEROQUEL [Suspect]
     Indication: BORDERLINE PERSONALITY DISORDER
     Route: 048
  2. ZOLOFT [Concomitant]
  3. SEROQUEL [Suspect]
     Route: 048
  4. SEROQUEL [Suspect]
     Indication: AFFECTIVE DISORDER
     Route: 048
  5. SEROQUEL [Suspect]
     Route: 048
  6. SEROQUEL [Suspect]
     Route: 048
  7. SEROQUEL [Suspect]
     Indication: DEPRESSION
     Route: 048
  8. SEROQUEL [Suspect]
     Route: 048
  9. SEROQUEL [Suspect]
     Indication: ANXIETY
     Route: 048
  10. BUSPAR [Concomitant]

REACTIONS (8)
  - ACTIVITIES OF DAILY LIVING IMPAIRED [None]
  - QUADRIPLEGIA [None]
  - GAIT DISTURBANCE [None]
  - MOOD SWINGS [None]
  - WEIGHT INCREASED [None]
  - DRUG DOSE OMISSION [None]
  - HYPERVENTILATION [None]
  - PANIC ATTACK [None]
